FAERS Safety Report 12353679 (Version 2)
Quarter: 2016Q3

REPORT INFORMATION
  Report Type: Spontaneous
  Country: IT (occurrence: IT)
  Receive Date: 20160511
  Receipt Date: 20160928
  Transmission Date: 20161109
  Serious: Yes (Disabling)
  Sender: FDA-Public Use
  Company Number: IT-ROCHE-1755385

PATIENT
  Age: 76 Year
  Sex: Female

DRUGS (1)
  1. XOLAIR [Suspect]
     Active Substance: OMALIZUMAB
     Indication: ASTHMA
     Route: 058
     Dates: start: 20101123, end: 20160119

REACTIONS (3)
  - Pulmonary hilum mass [Unknown]
  - Pulmonary mass [Unknown]
  - Necrosis [Unknown]

NARRATIVE: CASE EVENT DATE: 20151201
